FAERS Safety Report 6310213-X (Version None)
Quarter: 2009Q3

REPORT INFORMATION
  Report Type: 
  Country: None (occurrence: None)
  Receive Date: 20090814
  Receipt Date: 20090807
  Transmission Date: 20100115
  Serious: Yes (Death, Hospitalization)
  Sender: FDA-Public Use
  Company Number: US-WYE-H10036909

PATIENT
  Sex: Male

DRUGS (9)
  1. CORDARONE [Suspect]
     Indication: ARRHYTHMIA
     Route: 048
     Dates: end: 20060319
  2. IMDUR [Concomitant]
     Route: 065
  3. FOLIC ACID [Concomitant]
     Dosage: DOSE UNKNOWN, TWICE DAILY
     Route: 065
  4. ATIVAN [Concomitant]
     Route: 065
  5. CHRONULAC [Concomitant]
     Dosage: 1 TBSP EVERY 1 DAY
     Route: 065
  6. TENORMIN [Concomitant]
     Route: 065
  7. ORGANIDIN [Concomitant]
     Route: 065
  8. OXYBUTYNIN [Concomitant]
     Route: 065
  9. DIGOXIN [Concomitant]
     Route: 065

REACTIONS (3)
  - ACUTE RESPIRATORY DISTRESS SYNDROME [None]
  - DRUG TOXICITY [None]
  - PNEUMONIA BACTERIAL [None]
